FAERS Safety Report 9660304 (Version 2)
Quarter: 2013Q4

REPORT INFORMATION
  Report Type: Spontaneous
  Country: US (occurrence: US)
  Receive Date: 20131031
  Receipt Date: 20131031
  Transmission Date: 20140711
  Serious: Yes (Other)
  Sender: FDA-Public Use
  Company Number: US-NAPPMUNDI-USA-2011-0067553

PATIENT
  Sex: Male

DRUGS (1)
  1. OXYCONTIN TABLETS [Suspect]
     Indication: PAIN
     Dosage: 30 MG, Q12H
     Dates: start: 201101

REACTIONS (3)
  - Hallucination [Recovered/Resolved]
  - Breakthrough pain [Recovered/Resolved]
  - Dizziness [Recovered/Resolved]
